FAERS Safety Report 14271178 (Version 1)
Quarter: 2020Q3

REPORT INFORMATION
  Report Type: Report from Study
  Country: HU (occurrence: HU)
  Receive Date: 20171211
  Receipt Date: 20171211
  Transmission Date: 20201104
  Serious: Yes (Hospitalization, Other)
  Sender: FDA-Public Use
  Company Number: HU-PFIZER INC-2017521328

PATIENT
  Age: 48 Year
  Sex: Female

DRUGS (10)
  1. EPIRUBICIN HCL [Suspect]
     Active Substance: EPIRUBICIN HYDROCHLORIDE
     Indication: BREAST CANCER
     Dosage: UNK
  2. AFINITOR [Suspect]
     Active Substance: EVEROLIMUS
     Indication: METASTASES TO BONE
     Dosage: 10 MG, UNK
     Dates: start: 20150413, end: 20150908
  3. BISPHOSPHONATES [Concomitant]
     Active Substance: UNSPECIFIED INGREDIENT
     Dosage: UNK
  4. AFINITOR [Suspect]
     Active Substance: EVEROLIMUS
     Dosage: 5 MG, QD (1X/DAY)
     Dates: start: 20150909
  5. CYCLOPHOSPHAMIDE. [Suspect]
     Active Substance: CYCLOPHOSPHAMIDE
     Indication: BREAST CANCER
     Dosage: UNK
  6. IBANDRONIC ACID. [Suspect]
     Active Substance: IBANDRONIC ACID
     Indication: BREAST CANCER
     Dosage: 6 MG/500 ML
     Route: 042
  7. EXEMESTANE. [Concomitant]
     Active Substance: EXEMESTANE
     Dosage: UNK
  8. ANASTROZOL [Concomitant]
     Active Substance: ANASTROZOLE
     Dosage: UNK
  9. LETROZOLE. [Suspect]
     Active Substance: LETROZOLE
     Indication: BREAST CANCER
     Dosage: 2.5 MG, UNK
  10. PACLITAXEL. [Suspect]
     Active Substance: PACLITAXEL
     Indication: BREAST CANCER
     Dosage: UNK

REACTIONS (19)
  - Neoplasm progression [Unknown]
  - Gastrointestinal stenosis [Unknown]
  - Hyperuricaemia [Unknown]
  - Gallbladder cholesterolosis [Unknown]
  - Aphthous ulcer [Unknown]
  - Hepatotoxicity [Unknown]
  - Impaired gastric emptying [Unknown]
  - Synovitis [Unknown]
  - Meniscus injury [Unknown]
  - Spinal osteoarthritis [Unknown]
  - Oedema peripheral [Unknown]
  - Seroma [Unknown]
  - Oesophagitis [Unknown]
  - Ascites [Unknown]
  - Arthralgia [Unknown]
  - Stomatitis [Unknown]
  - Osteoarthritis [Unknown]
  - Thyroid function test abnormal [Unknown]
  - Tendon calcification [Unknown]

NARRATIVE: CASE EVENT DATE: 20101124
